FAERS Safety Report 20784035 (Version 2)
Quarter: 2022Q2

REPORT INFORMATION
  Report Type: Report from Study
  Country: CA (occurrence: CA)
  Receive Date: 20220504
  Receipt Date: 20220512
  Transmission Date: 20220720
  Serious: Yes (Hospitalization)
  Sender: FDA-Public Use
  Company Number: CA-TAKEDA-2022TUS029539

PATIENT
  Age: 14 Year
  Sex: Male

DRUGS (35)
  1. IDURSULFASE [Suspect]
     Active Substance: IDURSULFASE
     Indication: Mucopolysaccharidosis II
     Dosage: 0.5 MILLIGRAM/KILOGRAM, 1/WEEK
     Route: 042
     Dates: start: 20101110
  2. DIPHENHYDRAMINE [Concomitant]
     Active Substance: DIPHENHYDRAMINE
     Indication: Premedication
     Dosage: UNK
     Route: 048
     Dates: start: 20101110
  3. IBUPROFEN [Concomitant]
     Active Substance: IBUPROFEN
     Indication: Premedication
     Dosage: UNK
     Route: 048
     Dates: start: 20101110
  4. IBUPROFEN [Concomitant]
     Active Substance: IBUPROFEN
     Indication: Parainfluenzae virus infection
     Dosage: UNK
     Route: 048
     Dates: start: 20211019, end: 20211022
  5. HEPARIN [Concomitant]
     Active Substance: HEPARIN SODIUM
     Indication: Anticoagulant therapy
     Dosage: UNK
     Route: 042
     Dates: start: 20110119
  6. VENTOLIN [Concomitant]
     Active Substance: ALBUTEROL SULFATE
     Indication: Respiratory disorder
     Dosage: UNK
     Route: 055
     Dates: start: 20121204, end: 2013
  7. NASONEX [Concomitant]
     Active Substance: MOMETASONE FUROATE
     Indication: Respiratory disorder
     Dosage: UNK
     Route: 055
     Dates: start: 20121211, end: 2013
  8. SINGULAIR [Concomitant]
     Active Substance: MONTELUKAST SODIUM
     Indication: Bronchospasm
     Dosage: UNK
     Route: 048
     Dates: start: 20121211, end: 2013
  9. ACETAMINOPHEN [Concomitant]
     Active Substance: ACETAMINOPHEN
     Indication: Upper respiratory tract infection
     Dosage: UNK
     Route: 048
     Dates: start: 20190201, end: 20190202
  10. ACETAMINOPHEN [Concomitant]
     Active Substance: ACETAMINOPHEN
     Indication: Influenza
     Dosage: UNK
     Route: 048
     Dates: start: 20190212, end: 20190214
  11. ACETAMINOPHEN [Concomitant]
     Active Substance: ACETAMINOPHEN
     Indication: Pneumonia aspiration
     Dosage: UNK
     Route: 048
     Dates: start: 20190723, end: 20190724
  12. ACETAMINOPHEN [Concomitant]
     Active Substance: ACETAMINOPHEN
     Indication: Parainfluenzae virus infection
     Dosage: UNK
     Route: 048
     Dates: start: 20211019, end: 20211019
  13. OSELTAMIVIR [Concomitant]
     Active Substance: OSELTAMIVIR
     Indication: Influenza
     Dosage: UNK
     Route: 048
     Dates: start: 20190212, end: 20190216
  14. CEFTRIAXONE [Concomitant]
     Active Substance: CEFTRIAXONE
     Indication: Upper respiratory tract infection
     Dosage: UNK
     Route: 042
     Dates: start: 20190212, end: 20190212
  15. CEFTRIAXONE [Concomitant]
     Active Substance: CEFTRIAXONE
     Indication: Influenza
     Dosage: UNK
     Route: 042
     Dates: start: 20190723, end: 20190729
  16. CEFTRIAXONE [Concomitant]
     Active Substance: CEFTRIAXONE
     Indication: Pneumonia aspiration
     Dosage: UNK
     Route: 042
     Dates: start: 20211019, end: 20211019
  17. CEFTRIAXONE [Concomitant]
     Active Substance: CEFTRIAXONE
     Indication: Respiratory distress
  18. CEFTRIAXONE [Concomitant]
     Active Substance: CEFTRIAXONE
     Indication: Parainfluenzae virus infection
  19. LACTATED RINGERS SOLUTION [Concomitant]
     Active Substance: CALCIUM CHLORIDE\POTASSIUM CHLORIDE\SODIUM CHLORIDE\SODIUM LACTATE
     Indication: Dental cleaning
     Dosage: UNK
     Route: 042
     Dates: start: 20190723, end: 20190723
  20. LACTATED RINGERS SOLUTION [Concomitant]
     Active Substance: CALCIUM CHLORIDE\POTASSIUM CHLORIDE\SODIUM CHLORIDE\SODIUM LACTATE
     Indication: Anaesthesia
  21. KETOROLAC [Concomitant]
     Active Substance: KETOROLAC TROMETHAMINE
     Indication: Dental cleaning
     Dosage: UNK
     Route: 042
     Dates: start: 20190723, end: 20190723
  22. KETOROLAC [Concomitant]
     Active Substance: KETOROLAC TROMETHAMINE
     Indication: Anaesthesia
  23. DEXAMETHASONE PHOSPHATE [Concomitant]
     Active Substance: DEXAMETHASONE PHOSPHATE
     Indication: Dental cleaning
     Dosage: UNK
     Route: 042
     Dates: start: 20190723, end: 20190723
  24. DEXAMETHASONE PHOSPHATE [Concomitant]
     Active Substance: DEXAMETHASONE PHOSPHATE
     Indication: Anaesthesia
  25. ONDANSETRON [Concomitant]
     Active Substance: ONDANSETRON
     Indication: Dental cleaning
     Dosage: UNK
     Route: 042
     Dates: start: 20190723, end: 20190723
  26. ONDANSETRON [Concomitant]
     Active Substance: ONDANSETRON
     Indication: Anaesthesia
  27. REMIFENTANIL [Concomitant]
     Active Substance: REMIFENTANIL
     Indication: Dental cleaning
     Dosage: UNK
     Route: 042
     Dates: start: 20190723, end: 20190723
  28. REMIFENTANIL [Concomitant]
     Active Substance: REMIFENTANIL
     Indication: Anaesthesia
  29. PROPOFOL [Concomitant]
     Active Substance: PROPOFOL
     Indication: Dental cleaning
     Dosage: UNK
     Route: 042
     Dates: start: 20190723, end: 20190723
  30. PROPOFOL [Concomitant]
     Active Substance: PROPOFOL
     Indication: Anaesthesia
  31. FENTANYL [Concomitant]
     Active Substance: FENTANYL
     Indication: Dental cleaning
     Dosage: UNK
     Route: 042
     Dates: start: 20190723, end: 20190723
  32. FENTANYL [Concomitant]
     Active Substance: FENTANYL
     Indication: Anaesthesia
  33. FUROSEMIDE [Concomitant]
     Active Substance: FUROSEMIDE
     Indication: Pneumonia aspiration
     Dosage: UNK
     Route: 048
     Dates: start: 20190725, end: 20190728
  34. INFLUENZA VIRUS VACCINE [Concomitant]
     Active Substance: INFLUENZA VIRUS VACCINE
     Indication: Immunisation
     Dosage: UNK
     Route: 030
     Dates: start: 20201106, end: 20201106
  35. FLUTICASONE PROPIONATE [Concomitant]
     Active Substance: FLUTICASONE PROPIONATE
     Indication: Parainfluenzae virus infection
     Dosage: UNK
     Route: 055
     Dates: start: 20211020, end: 20211022

REACTIONS (1)
  - Rhinovirus infection [Not Recovered/Not Resolved]

NARRATIVE: CASE EVENT DATE: 20220401
